FAERS Safety Report 16560730 (Version 1)
Quarter: 2019Q3

REPORT INFORMATION
  Report Type: Spontaneous
  Country: US (occurrence: US)
  Receive Date: 20190711
  Receipt Date: 20190711
  Transmission Date: 20191004
  Serious: No
  Sender: FDA-Public Use
  Company Number: US-SA-2019SA185059

PATIENT
  Age: 19 Year
  Sex: Male

DRUGS (9)
  1. VENTOLIN HFA [Concomitant]
     Active Substance: ALBUTEROL SULFATE
  2. MONTELUKAST [Concomitant]
     Active Substance: MONTELUKAST SODIUM
  3. TACROLIMUS. [Concomitant]
     Active Substance: TACROLIMUS
  4. DUPIXENT [Suspect]
     Active Substance: DUPILUMAB
     Indication: ASTHMA
     Dosage: 2 DF, 1X
     Route: 058
     Dates: start: 20190606, end: 20190606
  5. POLYMYXIN/TRIMETHOPRIM [Concomitant]
     Active Substance: POLYMYXIN B SULFATE\TRIMETHOPRIM
  6. MECLIZINE [Concomitant]
     Active Substance: MECLIZINE HYDROCHLORIDE
  7. ADVAIR HFA [Concomitant]
     Active Substance: FLUTICASONE PROPIONATE\SALMETEROL XINAFOATE
  8. ONDANSETRON [Concomitant]
     Active Substance: ONDANSETRON
  9. OLOPATADINE. [Concomitant]
     Active Substance: OLOPATADINE

REACTIONS (1)
  - Dizziness [Not Recovered/Not Resolved]

NARRATIVE: CASE EVENT DATE: 20190607
